FAERS Safety Report 17934653 (Version 3)
Quarter: 2020Q2

REPORT INFORMATION
  Report Type: Spontaneous
  Country: BR (occurrence: BR)
  Receive Date: 20200624
  Receipt Date: 20200626
  Transmission Date: 20200714
  Serious: Yes (Disabling)
  Sender: FDA-Public Use
  Company Number: BR-ABBVIE-20K-020-3453647-00

PATIENT
  Age: 48 Year
  Sex: Male
  Weight: 72 kg

DRUGS (4)
  1. HUMIRA [Suspect]
     Active Substance: ADALIMUMAB
     Indication: ANKYLOSING SPONDYLITIS
     Route: 058
     Dates: start: 2016
  2. HUMIRA [Suspect]
     Active Substance: ADALIMUMAB
     Indication: ANKYLOSING SPONDYLITIS
     Route: 058
  3. ALLOPURINOL. [Concomitant]
     Active Substance: ALLOPURINOL
     Indication: BLOOD URIC ACID ABNORMAL
     Route: 048
     Dates: start: 2017
  4. LOSARTAN. [Concomitant]
     Active Substance: LOSARTAN
     Indication: HYPERTENSION
     Route: 048
     Dates: start: 2012

REACTIONS (20)
  - Back injury [Unknown]
  - Injection site pain [Recovered/Resolved]
  - Injection site mass [Recovered/Resolved]
  - Anxiety [Recovered/Resolved]
  - Musculoskeletal chest pain [Not Recovered/Not Resolved]
  - Wound complication [Recovering/Resolving]
  - Impaired work ability [Unknown]
  - Injection site hypoaesthesia [Recovering/Resolving]
  - Rash pustular [Recovering/Resolving]
  - Varicella [Unknown]
  - Back pain [Recovering/Resolving]
  - Wound [Recovering/Resolving]
  - Pain [Recovering/Resolving]
  - Herpes zoster [Recovering/Resolving]
  - Injection site pruritus [Recovered/Resolved]
  - Injection site reaction [Recovering/Resolving]
  - Injection site discharge [Recovering/Resolving]
  - Injection site erythema [Unknown]
  - Injection site inflammation [Not Recovered/Not Resolved]
  - Immunodeficiency [Recovering/Resolving]

NARRATIVE: CASE EVENT DATE: 2018
